FAERS Safety Report 7610112-7 (Version None)
Quarter: 2011Q3

REPORT INFORMATION
  Report Type: 
  Country: None (occurrence: None)
  Receive Date: 20110715
  Receipt Date: 20110701
  Transmission Date: 20111222
  Serious: Yes (Hospitalization, Other)
  Sender: FDA-Public Use
  Company Number: 2009BI019858

PATIENT
  Age: 42 Year
  Sex: Female

DRUGS (4)
  1. NEURONTIN [Concomitant]
     Indication: PAIN
  2. MUSCLE RELAXER (NOS) [Concomitant]
     Indication: MUSCLE SPASMS
  3. TYSABRI [Suspect]
     Indication: MULTIPLE SCLEROSIS
     Route: 042
     Dates: start: 20070727
  4. PAIN MEDICATIONS (NOS) [Concomitant]
     Indication: PAIN

REACTIONS (6)
  - DEVICE RELATED INFECTION [None]
  - FATIGUE [None]
  - DRUG DELIVERY DEVICE IMPLANTATION [None]
  - MULTIPLE SCLEROSIS RELAPSE [None]
  - MULTIPLE SCLEROSIS [None]
  - SLUGGISHNESS [None]
